FAERS Safety Report 6508017-8 (Version None)
Quarter: 2009Q4

REPORT INFORMATION
  Report Type: 
  Country: None (occurrence: None)
  Receive Date: 20091221
  Receipt Date: 20091217
  Transmission Date: 20100525
  Serious: Yes (Death)
  Sender: FDA-Public Use
  Company Number: AU-WYE-G05183409

PATIENT

DRUGS (1)
  1. PRISTIQ [Suspect]

REACTIONS (1)
  - COMPLETED SUICIDE [None]
